FAERS Safety Report 6503679-3 (Version None)
Quarter: 2009Q4

REPORT INFORMATION
  Report Type: 
  Country: None (occurrence: None)
  Receive Date: 20091217
  Receipt Date: 20091209
  Transmission Date: 20100525
  Serious: Yes (Hospitalization)
  Sender: FDA-Public Use
  Company Number: JP-NOVOPROD-300418

PATIENT
  Age: 64 Year
  Sex: Male
  Weight: 68 kg

DRUGS (9)
  1. NOVORAPID 30 MIX CHU FLEXPEN [Suspect]
     Indication: TYPE 2 DIABETES MELLITUS
     Dosage: 9 U, QD
     Route: 058
     Dates: start: 20050101, end: 20090601
  2. PENFILL 30R CHU [Suspect]
     Indication: TYPE 2 DIABETES MELLITUS
     Dosage: 18 IU, QD
     Route: 058
     Dates: start: 20010101, end: 20050101
  3. MIGLITOL [Concomitant]
     Indication: TYPE 2 DIABETES MELLITUS
     Dosage: 150 MG, UNK
     Route: 048
     Dates: start: 20080503, end: 20090601
  4. BASEN [Concomitant]
     Indication: TYPE 2 DIABETES MELLITUS
     Dosage: 0.9 MG, UNK
     Route: 048
     Dates: end: 20080422
  5. NU-LOTAN [Concomitant]
     Dosage: 50 MG, QD
     Route: 048
     Dates: end: 20080501
  6. MICARDIS [Concomitant]
     Dosage: 20 MG, QD
     Route: 048
     Dates: start: 20080501, end: 20081001
  7. DIART [Concomitant]
     Dosage: 60 MG, QD
     Route: 048
     Dates: start: 20090101, end: 20090601
  8. CALBLOCK [Concomitant]
     Dosage: 8-16 MG
     Route: 048
     Dates: start: 20090201
  9. LIVALO [Concomitant]
     Dosage: 2 MG, QD
     Route: 048
     Dates: start: 20080401, end: 20080801

REACTIONS (3)
  - ANTI-INSULIN ANTIBODY POSITIVE [None]
  - HYPERGLYCAEMIA [None]
  - HYPOGLYCAEMIA [None]
